FAERS Safety Report 4844140-1 (Version None)
Quarter: 2005Q4

REPORT INFORMATION
  Report Type: 
  Country: None (occurrence: None)
  Receive Date: 20051202
  Receipt Date: 20051102
  Transmission Date: 20060501
  Serious: Yes (Hospitalization)
  Sender: FDA-Public Use
  Company Number: US-BRISTOL-MYERS SQUIBB COMPANY-13165204

PATIENT
  Age: 66 Year
  Sex: Male
  Weight: 71 kg

DRUGS (15)
  1. CETUXIMAB [Suspect]
     Indication: NON-SMALL CELL LUNG CANCER
     Route: 042
     Dates: start: 20051024, end: 20051024
  2. CARBOPLATIN [Suspect]
     Indication: NON-SMALL CELL LUNG CANCER
     Dosage: AUC 6.
     Route: 042
     Dates: start: 20051024, end: 20051024
  3. DOCETAXEL [Suspect]
     Indication: NON-SMALL CELL LUNG CANCER
     Route: 042
     Dates: start: 20051024, end: 20051024
  4. ALBUTEROL [Concomitant]
     Route: 055
  5. ALBUTEROL [Concomitant]
     Route: 055
  6. AMIODARONE [Concomitant]
  7. COUMADIN [Concomitant]
     Dosage: 2.5 MG ON DAY #1, DAY #2, NONE ON THE THIRD DAY, ON A RECURRING DOSE.
  8. HYDROCHLOROTHIAZIDE [Concomitant]
  9. K-DUR 10 [Concomitant]
  10. LASIX [Concomitant]
  11. MAG-OX [Concomitant]
  12. NEURONTIN [Concomitant]
  13. PREDNISONE [Concomitant]
     Dosage: TAPERING DOSES, PRESENTLY ON 10 MG DAILY.
  14. PROCARDIA XL [Concomitant]
  15. WELLBUTRIN [Concomitant]

REACTIONS (2)
  - DYSPNOEA EXERTIONAL [None]
  - NAUSEA [None]
